FAERS Safety Report 24920271 (Version 1)
Quarter: 2025Q1

REPORT INFORMATION
  Report Type: Spontaneous
  Country: RU (occurrence: RU)
  Receive Date: 20250204
  Receipt Date: 20250204
  Transmission Date: 20250409
  Serious: No
  Sender: EXELIXIS
  Company Number: RU-IPSEN Group, Research and Development-2024-01456

PATIENT

DRUGS (2)
  1. CABOMETYX [Suspect]
     Active Substance: CABOZANTINIB S-MALATE
     Indication: Renal cancer stage II
     Route: 065
  2. NIVOLUMAB [Suspect]
     Active Substance: NIVOLUMAB
     Indication: Product used for unknown indication
     Route: 065

REACTIONS (9)
  - Chest pain [Unknown]
  - Palmar-plantar erythrodysaesthesia syndrome [Unknown]
  - Hair colour changes [Unknown]
  - Sciatica [Unknown]
  - Conjunctivitis [Unknown]
  - Rash [Unknown]
  - Rash [Unknown]
  - Dry skin [Unknown]
  - Off label use [Unknown]
